FAERS Safety Report 9157706 (Version 1)
Quarter: 2013Q1

REPORT INFORMATION
  Report Type: Report from Study
  Country: US (occurrence: US)
  Receive Date: 20130312
  Receipt Date: 20130312
  Transmission Date: 20140127
  Serious: Yes (Hospitalization)
  Sender: FDA-Public Use
  Company Number: US-009507513-1303USA002715

PATIENT
  Age: 40 Year
  Sex: Male
  Weight: 87.1 kg

DRUGS (8)
  1. VORINOSTAT [Suspect]
     Indication: MANTLE CELL LYMPHOMA
     Dosage: 400 MG DAILY
     Route: 048
     Dates: start: 20130220
  2. RITUXIMAB [Suspect]
     Indication: MANTLE CELL LYMPHOMA
     Dosage: 800 MG DAILY, WEEKLY X 4
     Route: 042
     Dates: start: 20130222
  3. CLADRIBINE [Suspect]
     Indication: MANTLE CELL LYMPHOMA
     Dosage: 12 MG DAILY, DAILY X 5
     Route: 042
     Dates: start: 20130220, end: 20130224
  4. ACYCLOVIR [Concomitant]
     Indication: ANTIVIRAL PROPHYLAXIS
     Dosage: 800 MG, QD
     Route: 048
     Dates: start: 20130220
  5. BACTRIM [Concomitant]
     Indication: INFECTION PROPHYLAXIS
     Dosage: 2 TABS, BID (MORNING/EVENING)
     Route: 048
     Dates: start: 20130220
  6. ALLOPURINOL [Concomitant]
     Indication: PROPHYLAXIS
     Dosage: 300 MG, QD
     Route: 048
     Dates: start: 20130220
  7. ATIVAN [Concomitant]
     Indication: PROPHYLAXIS OF NAUSEA AND VOMITING
     Dosage: 1 MG, PRN
     Route: 048
     Dates: start: 20130220
  8. TYLENOL [Concomitant]
     Indication: PROPHYLAXIS
     Dosage: 650 MG, PRN
     Route: 048
     Dates: start: 20130222

REACTIONS (1)
  - Febrile neutropenia [Recovered/Resolved]
